FAERS Safety Report 8857767 (Version 1)
Quarter: 2012Q4

REPORT INFORMATION
  Report Type: 
  Country: BE (occurrence: DE)
  Receive Date: 20121024
  Receipt Date: 20121024
  Transmission Date: 20130627
  Serious: Yes (Other)
  Sender: FDA-Public Use
  Company Number: BE-WATSON-2012-18464

PATIENT
  Age: 81 Year
  Sex: Female

DRUGS (11)
  1. FERROUS SULFATE [Suspect]
     Indication: PRODUCT USED FOR UNKNOWN INDICATION
     Dosage: Unknown dose
     Route: 048
     Dates: start: 20120830
  2. OMEPRAZOLE [Suspect]
     Indication: PRODUCT USED FOR UNKNOWN INDICATION
     Dosage: Unknown dose
     Route: 048
     Dates: start: 20120830
  3. RAMIPRIL [Suspect]
     Indication: PRODUCT USED FOR UNKNOWN INDICATION
     Dosage: 5/25, 1 tablet
     Route: 048
     Dates: start: 20120830
  4. LORAZEPAM [Suspect]
     Indication: PRODUCT USED FOR UNKNOWN INDICATION
     Dosage: 1, 0.5 tablet, 0.5 mg  total amount
     Route: 048
     Dates: start: 20120830
  5. PANTOPRAZOLE [Suspect]
     Indication: PRODUCT USED FOR UNKNOWN INDICATION
     Dosage: 40 mg, 1 tablet
     Route: 048
     Dates: start: 20120830
  6. LEVOMEPROMAZINE HYDROCHLORIDE [Suspect]
     Indication: PRODUCT USED FOR UNKNOWN INDICATION
     Dosage: 25 mg; 3 tablets, 75 mg
     Route: 048
     Dates: start: 20120830
  7. METHIONINE [Suspect]
     Indication: PRODUCT USED FOR UNKNOWN INDICATION
     Dosage: 500 mg, one tablet
     Route: 048
     Dates: start: 20120830
  8. ASS [Suspect]
     Indication: PRODUCT USED FOR UNKNOWN INDICATION
     Dosage: 100 mg, 1 tablet
     Route: 048
     Dates: start: 20120830
  9. MICARDIS [Suspect]
     Indication: PRODUCT USED FOR UNKNOWN INDICATION
     Dosage: 40, unknown dose
     Route: 048
     Dates: start: 20120830
  10. CYMBALTA [Suspect]
     Indication: PRODUCT USED FOR UNKNOWN INDICATION
     Dosage: 30; unknown dose
     Route: 048
     Dates: start: 20120830
  11. L-THYROXIN [Suspect]
     Indication: PRODUCT USED FOR UNKNOWN INDICATION
     Dosage: 100, 1 tablet
     Route: 048
     Dates: start: 20120830

REACTIONS (5)
  - Hypotension [Unknown]
  - Slow response to stimuli [Unknown]
  - Dysarthria [Unknown]
  - Dizziness [Unknown]
  - Accidental exposure to product [Unknown]
